FAERS Safety Report 7770680-1 (Version None)
Quarter: 2011Q3

REPORT INFORMATION
  Report Type: 
  Country: None (occurrence: None)
  Receive Date: 20110922
  Receipt Date: 20100827
  Transmission Date: 20111222
  Serious: No
  Sender: FDA-Public Use
  Company Number: US-ASTRAZENECA-2007UW27512

PATIENT
  Age: 50 Year
  Sex: Male
  Weight: 106.6 kg

DRUGS (9)
  1. ABILIFY [Concomitant]
     Dates: start: 20030101
  2. SEROQUEL [Suspect]
     Indication: BIPOLAR DISORDER
     Dosage: 100MG; 300MG AND 800MG
     Route: 048
     Dates: start: 20021201, end: 20070501
  3. NAVANE [Concomitant]
  4. HALDOL [Concomitant]
  5. SEROQUEL [Suspect]
     Dosage: 100MG TO 300MG
     Route: 048
     Dates: start: 20030401, end: 20061201
  6. SEROQUEL [Suspect]
     Indication: SCHIZOPHRENIA
     Dosage: 100MG; 300MG AND 800MG
     Route: 048
     Dates: start: 20021201, end: 20070501
  7. STELAZINE [Concomitant]
  8. THORAZINE [Concomitant]
  9. SEROQUEL [Suspect]
     Dosage: 100MG TO 300MG
     Route: 048
     Dates: start: 20030401, end: 20061201

REACTIONS (4)
  - BLOOD CHOLESTEROL INCREASED [None]
  - DIABETES MELLITUS [None]
  - DIABETIC COMPLICATION [None]
  - OBESITY [None]
